FAERS Safety Report 11705288 (Version 1)
Quarter: 2015Q4

REPORT INFORMATION
  Report Type: Report from Study
  Country: US (occurrence: US)
  Receive Date: 20151106
  Receipt Date: 20151106
  Transmission Date: 20160304
  Serious: Yes (Hospitalization, Other)
  Sender: FDA-Public Use
  Company Number: US-GILEAD-2015-0180681

PATIENT
  Age: 31 Year
  Sex: Female

DRUGS (3)
  1. WARFARIN [Concomitant]
     Active Substance: WARFARIN
  2. AMBRISENTAN [Suspect]
     Active Substance: AMBRISENTAN
     Indication: PULMONARY ARTERIAL HYPERTENSION
     Dosage: 10 MG, QD
     Route: 065
     Dates: start: 20150522
  3. ADCIRCA [Concomitant]
     Active Substance: TADALAFIL

REACTIONS (7)
  - Fall [Unknown]
  - Syncope [Unknown]
  - Vaginal haemorrhage [Unknown]
  - Head injury [Unknown]
  - Blood potassium abnormal [Unknown]
  - Muscle spasms [Unknown]
  - Contusion [Unknown]

NARRATIVE: CASE EVENT DATE: 201510
